FAERS Safety Report 13281509 (Version 1)
Quarter: 2017Q1

REPORT INFORMATION
  Report Type: Spontaneous
  Country: None (occurrence: US)
  Receive Date: 20170301
  Receipt Date: 20170301
  Transmission Date: 20170428
  Serious: No
  Sender: FDA-Public Use
  Company Number: US-AMAG PHARMACEUTICALS, INC.-AMAG201601706

PATIENT

DRUGS (1)
  1. MAKENA [Suspect]
     Active Substance: HYDROXYPROGESTERONE CAPROATE
     Indication: PRODUCT USED FOR UNKNOWN INDICATION
     Dosage: UNK
     Route: 065
     Dates: start: 2016

REACTIONS (6)
  - Pharyngeal oedema [Unknown]
  - Nausea [Unknown]
  - Dizziness [Unknown]
  - Pruritus [Unknown]
  - Chest discomfort [Unknown]
  - Swollen tongue [Unknown]

NARRATIVE: CASE EVENT DATE: 2016
